FAERS Safety Report 4932596-5 (Version None)
Quarter: 2006Q1

REPORT INFORMATION
  Report Type: 
  Country: None (occurrence: None)
  Receive Date: 20060301
  Receipt Date: 20060217
  Transmission Date: 20060701
  Serious: Yes (Death)
  Sender: FDA-Public Use
  Company Number: MEDI-0004208

PATIENT
  Age: 10 Month
  Sex: Male

DRUGS (6)
  1. SYNAGIS [Suspect]
     Indication: ANTIVIRAL PROPHYLAXIS
     Dosage: 90 MG, 1 IN 30 D, INTRAMUSCULAR
     Route: 030
     Dates: start: 20060113, end: 20060113
  2. CARVEDILOL [Concomitant]
  3. ENALAPRIL MALEATE [Concomitant]
  4. PIMOBENDAN [Concomitant]
  5. SODIUM FERROUS CITRATE (SODIUM CITRATE) [Concomitant]
  6. ERYTHROMYCIN [Concomitant]

REACTIONS (2)
  - RESPIRATORY SYNCYTIAL VIRUS INFECTION [None]
  - RHINORRHOEA [None]
